FAERS Safety Report 6763273-6 (Version None)
Quarter: 2010Q2

REPORT INFORMATION
  Report Type: 
  Country: None (occurrence: None)
  Receive Date: 20100608
  Receipt Date: 20100608
  Transmission Date: 20101027
  Serious: Yes (Other)
  Sender: FDA-Public Use
  Company Number: None

PATIENT
  Age: 81 Year
  Sex: Female
  Weight: 54.4316 kg

DRUGS (1)
  1. LEVAQUIN [Suspect]
     Indication: BRONCHITIS
     Dosage: 1 TAB DAILY PO
     Route: 048
     Dates: start: 20100421, end: 20100428

REACTIONS (2)
  - GASTROINTESTINAL MOTILITY DISORDER [None]
  - ILL-DEFINED DISORDER [None]
